FAERS Safety Report 5901545-5 (Version None)
Quarter: 2008Q3

REPORT INFORMATION
  Report Type: 
  Country: None (occurrence: None)
  Receive Date: 20080926
  Receipt Date: 20080926
  Transmission Date: 20090109
  Serious: Yes (Hospitalization)
  Sender: FDA-Public Use
  Company Number: None

PATIENT
  Sex: Female
  Weight: 97.8 kg

DRUGS (9)
  1. CISPLATIN [Suspect]
     Dosage: 100 MG
  2. DOXORUBICIN HYDROCHLORIDE [Suspect]
     Dosage: 90 MG
  3. TAXOL [Suspect]
     Dosage: 320 MG
  4. NEULASTA [Suspect]
     Dosage: 6 MG
  5. ARALIDE [Concomitant]
  6. IBUPROFEN [Concomitant]
  7. LOSTATIN [Concomitant]
  8. M.V.I. [Concomitant]
  9. ZOFRAN [Concomitant]

REACTIONS (7)
  - BACTERIAL INFECTION [None]
  - CATHETER SITE INFECTION [None]
  - DIARRHOEA [None]
  - FATIGUE [None]
  - HYPOTENSION [None]
  - NEUTROPENIA [None]
  - PYREXIA [None]
